FAERS Safety Report 8517611-4 (Version None)
Quarter: 2012Q3

REPORT INFORMATION
  Report Type: 
  Country: None (occurrence: None)
  Receive Date: 20120718
  Receipt Date: 20120703
  Transmission Date: 20120928
  Serious: Yes (Other)
  Sender: FDA-Public Use
  Company Number: US-ARROW-2012-11672

PATIENT
  Sex: Female
  Weight: 66 kg

DRUGS (3)
  1. AMETHIA (WATSON LABORATORIES) [Suspect]
     Indication: MENSTRUAL CYCLE MANAGEMENT
  2. PREDNISONE TAB [Suspect]
     Indication: GASTROINTESTINAL DISORDER
     Dosage: UNK
     Route: 048
     Dates: start: 20120601, end: 20120601
  3. AMETHIA (WATSON LABORATORIES) [Suspect]
     Indication: MENSTRUAL DISORDER
     Dosage: 1 TABLET DAILY
     Route: 048
     Dates: start: 20120501

REACTIONS (2)
  - DRUG INTERACTION [None]
  - DRUG INEFFECTIVE [None]
